FAERS Safety Report 4728293-1 (Version None)
Quarter: 2005Q3

REPORT INFORMATION
  Report Type: 
  Country: None (occurrence: None)
  Receive Date: 20050727
  Receipt Date: 20050714
  Transmission Date: 20060218
  Serious: Yes (Disabling, Other)
  Sender: FDA-Public Use
  Company Number: 2005081809

PATIENT
  Age: 70 Year
  Sex: Female

DRUGS (14)
  1. CELEBREX [Suspect]
     Indication: ARTHRITIS
     Dosage: ORAL
     Route: 048
     Dates: start: 20050412, end: 20050506
  2. ARTHROTEC [Suspect]
     Indication: ARTHRITIS
     Dosage: ORAL
     Route: 048
     Dates: start: 20050101, end: 20050101
  3. BEXTRA [Suspect]
     Indication: ARTHRITIS
     Dosage: 20 MG (20 MG, 1 IN 1 D), ORAL
     Route: 048
  4. MOBIC [Suspect]
     Indication: ILL-DEFINED DISORDER
  5. PREVACID [Concomitant]
  6. ASPIRIN [Concomitant]
  7. GLUCOSAMINE WITH MSM (GLUCOSAMINE, METHYLSULFONYLMETHANE) [Concomitant]
  8. CALCIUM W/MAGNESIUM (CALCIUM, MAGNESIUM) [Concomitant]
  9. VITAMINS [Concomitant]
  10. FOLIC ACID [Concomitant]
  11. FOSAMAX [Concomitant]
  12. WELLBUTRIN XL [Concomitant]
  13. BETIM (TIMOLOL MALEATE) [Concomitant]
  14. XALATAN [Concomitant]

REACTIONS (11)
  - ABDOMINAL PAIN UPPER [None]
  - ARTHRALGIA [None]
  - ARTHRITIS [None]
  - BURSITIS [None]
  - DRUG EFFECT DECREASED [None]
  - DRUG ERUPTION [None]
  - DRUG HYPERSENSITIVITY [None]
  - DYSPEPSIA [None]
  - EXOSTOSIS [None]
  - INSOMNIA [None]
  - SMEAR CERVIX ABNORMAL [None]
